FAERS Safety Report 4439461-0 (Version None)
Quarter: 2004Q3

REPORT INFORMATION
  Report Type: 
  Country: None (occurrence: None)
  Receive Date: 20040728
  Receipt Date: 20040309
  Transmission Date: 20050211
  Serious: No
  Sender: FDA-Public Use
  Company Number: USA040361474

PATIENT
  Age: 16 Year
  Sex: Male
  Weight: 123 kg

DRUGS (3)
  1. STRATTERA [Suspect]
     Indication: ATTENTION DEFICIT/HYPERACTIVITY DISORDER
     Dosage: 120 MG
     Dates: start: 20030401
  2. DECONGESTANT [Concomitant]
  3. TRAZODONE HCL [Concomitant]

REACTIONS (2)
  - DRUG INEFFECTIVE [None]
  - PRESCRIBED OVERDOSE [None]
